FAERS Safety Report 8514706-6 (Version None)
Quarter: 2012Q3

REPORT INFORMATION
  Report Type: 
  Country: None (occurrence: None)
  Receive Date: 20120711
  Receipt Date: 20120711
  Transmission Date: 20120928
  Serious: Yes (Other)
  Sender: FDA-Public Use
  Company Number: None

PATIENT
  Age: 50 Year
  Sex: Female
  Weight: 158.9 kg

DRUGS (1)
  1. BUMETANIDE [Suspect]
     Indication: NEPHROTIC SYNDROME
     Dosage: 2MG BID IV
     Route: 042
     Dates: start: 20120708, end: 20120709

REACTIONS (3)
  - DIZZINESS [None]
  - MUSCLE TWITCHING [None]
  - CHILLS [None]
